FAERS Safety Report 9400292 (Version 1)
Quarter: 2013Q3

REPORT INFORMATION
  Report Type: Spontaneous
  Country: US (occurrence: None)
  Receive Date: 20130712
  Receipt Date: 20130712
  Transmission Date: 20140515
  Serious: Yes (Death)
  Sender: FDA-Public Use
  Company Number: None

PATIENT
  Age: 49 Year
  Sex: Male
  Weight: 113.3 kg

DRUGS (1)
  1. TADALAFIL [Suspect]
     Indication: ERECTILE DYSFUNCTION
     Dosage: UNKNOWN  1X  ORAL
     Route: 048
     Dates: start: 20130223

REACTIONS (4)
  - Blood pressure increased [None]
  - Resuscitation [None]
  - Pulse absent [None]
  - Alcohol use [None]
